FAERS Safety Report 10428381 (Version 4)
Quarter: 2015Q2

REPORT INFORMATION
  Report Type: Spontaneous
  Country: CA (occurrence: CA)
  Receive Date: 20140903
  Receipt Date: 20150622
  Transmission Date: 20150821
  Serious: Yes (Hospitalization, Other)
  Sender: FDA-Public Use
  Company Number: CA-GLAXOSMITHKLINE-A1087149A

PATIENT
  Sex: Male

DRUGS (1)
  1. TAFINLAR [Suspect]
     Active Substance: DABRAFENIB MESYLATE
     Indication: METASTATIC MALIGNANT MELANOMA
     Dosage: 300 MG, 1D
     Route: 065

REACTIONS (9)
  - Depressed level of consciousness [Recovering/Resolving]
  - Fatigue [Unknown]
  - Decubitus ulcer [Not Recovered/Not Resolved]
  - Hypotension [Unknown]
  - Terminal state [Unknown]
  - Choking [Unknown]
  - Urinary tract infection [Unknown]
  - Dysphagia [Recovering/Resolving]
  - Hospitalisation [Unknown]
